FAERS Safety Report 14768454 (Version 12)
Quarter: 2019Q1

REPORT INFORMATION
  Report Type: Spontaneous
  Country: US (occurrence: US)
  Receive Date: 20180417
  Receipt Date: 20190123
  Transmission Date: 20190417
  Serious: No
  Sender: FDA-Public Use
  Company Number: US-INCYTE CORPORATION-2018IN003272

PATIENT

DRUGS (13)
  1. JAKAFI [Suspect]
     Active Substance: RUXOLITINIB
     Dosage: 10 MG, BID
     Route: 048
     Dates: start: 20180327, end: 201807
  2. ASPIRIN                            /00002701/ [Concomitant]
     Active Substance: ASPIRIN
     Indication: PRODUCT USED FOR UNKNOWN INDICATION
     Dosage: 325 MG, UNK
     Route: 065
  3. PERCOCET                           /00446701/ [Concomitant]
     Active Substance: ACETAMINOPHEN\OXYCODONE HYDROCHLORIDE\OXYCODONE TEREPHTHALATE
     Indication: PRODUCT USED FOR UNKNOWN INDICATION
     Dosage: 10-325 MG, UNK
     Route: 065
  4. JAKAFI [Suspect]
     Active Substance: RUXOLITINIB
     Dosage: 15 MG, BID
     Route: 065
     Dates: start: 20180711, end: 201808
  5. JAKAFI [Suspect]
     Active Substance: RUXOLITINIB
     Dosage: 20 MG, BID
     Route: 048
     Dates: start: 20180810
  6. ALLEGRA ALLERGY [Concomitant]
     Active Substance: FEXOFENADINE HYDROCHLORIDE
     Indication: PRODUCT USED FOR UNKNOWN INDICATION
     Dosage: 180 MG, UNK
     Route: 048
  7. LISINOPRIL. [Concomitant]
     Active Substance: LISINOPRIL
     Indication: PRODUCT USED FOR UNKNOWN INDICATION
     Dosage: 5 MG, UNK
     Route: 048
  8. JAKAFI [Suspect]
     Active Substance: RUXOLITINIB
     Indication: MYELOFIBROSIS
     Dosage: UNK
     Route: 065
     Dates: start: 20180323
  9. MULTIVITAMIN                       /00097801/ [Concomitant]
     Active Substance: VITAMINS
     Indication: PRODUCT USED FOR UNKNOWN INDICATION
     Dosage: UNK
     Route: 048
  10. ZANTAC [Concomitant]
     Active Substance: RANITIDINE HYDROCHLORIDE
     Indication: PRODUCT USED FOR UNKNOWN INDICATION
     Dosage: 300 MG, UNK
     Route: 048
  11. METFORMIN [Concomitant]
     Active Substance: METFORMIN HYDROCHLORIDE
     Indication: PRODUCT USED FOR UNKNOWN INDICATION
     Dosage: UNK
     Route: 065
  12. BABY ASPIRIN [Concomitant]
     Active Substance: ASPIRIN
     Indication: PRODUCT USED FOR UNKNOWN INDICATION
     Dosage: UNK
     Route: 065
  13. JAKAFI [Suspect]
     Active Substance: RUXOLITINIB
     Dosage: 20 MG, BID
     Route: 065
     Dates: start: 201808

REACTIONS (21)
  - Fatigue [Not Recovered/Not Resolved]
  - Product physical issue [Unknown]
  - Blood count abnormal [Recovered/Resolved]
  - Rash [Unknown]
  - Cough [Not Recovered/Not Resolved]
  - Muscular weakness [Unknown]
  - Somnolence [Not Recovered/Not Resolved]
  - Spleen disorder [Not Recovered/Not Resolved]
  - Abdominal pain [Not Recovered/Not Resolved]
  - Arthralgia [Unknown]
  - Stomatitis [Recovering/Resolving]
  - Incorrect dose administered [Unknown]
  - Diarrhoea [Unknown]
  - Haemoglobin decreased [Not Recovered/Not Resolved]
  - Headache [Not Recovered/Not Resolved]
  - Flatulence [Not Recovered/Not Resolved]
  - Abdominal distension [Unknown]
  - Constipation [Recovering/Resolving]
  - Splenomegaly [Not Recovered/Not Resolved]
  - Rash pruritic [Unknown]
  - Platelet count decreased [Not Recovered/Not Resolved]

NARRATIVE: CASE EVENT DATE: 20180327
